FAERS Safety Report 8718833 (Version 2)
Quarter: 2012Q4

REPORT INFORMATION
  Report Type: 
  Country: BR (occurrence: BR)
  Receive Date: 20120810
  Receipt Date: 20121101
  Transmission Date: 20130627
  Serious: Yes (Other)
  Sender: FDA-Public Use
  Company Number: BR-ALLERGAN-1210695US

PATIENT
  Sex: Female

DRUGS (5)
  1. PRED FORTE [Suspect]
     Indication: CORNEAL TRANSPLANT
     Dosage: 2 Gtt, q3hr
     Route: 047
     Dates: start: 20120722
  2. PREDNISONE [Concomitant]
     Indication: DRUG USE FOR UNKNOWN INDICATION
  3. METAMIZOLE SODIUM [Concomitant]
     Indication: DRUG USE FOR UNKNOWN INDICATION
  4. METAMIZOLE SODIUM W/ ADIFENINA HCL, PROMETHAZINE HCL [Concomitant]
     Indication: DRUG USE FOR UNKNOWN INDICATION
  5. PROPRANOLOL [Concomitant]
     Indication: DRUG USE FOR UNKNOWN INDICATION

REACTIONS (3)
  - Gait disturbance [Unknown]
  - Bone pain [Unknown]
  - Neuralgia [Unknown]
